FAERS Safety Report 8447687-4 (Version None)
Quarter: 2012Q2

REPORT INFORMATION
  Report Type: 
  Country: None (occurrence: None)
  Receive Date: 20120619
  Receipt Date: 20120618
  Transmission Date: 20120825
  Serious: Yes (Death)
  Sender: FDA-Public Use
  Company Number: BR-PFIZER INC-2012140888

PATIENT
  Age: 73 Year
  Sex: Female

DRUGS (6)
  1. ATENOLOL [Concomitant]
     Dosage: 25 MG, 1X/DAY
  2. FUROSEMIDE [Concomitant]
     Dosage: ONE TABLET OF 40MG IN THE MORNING AND HALF TABLET OF 40MG AT NIGHT
  3. SUTENT [Suspect]
     Indication: RENAL CELL CARCINOMA
     Dosage: 50 MG, UNSPECIFIED FREQUENCY, FOR 4 WEEKS, THEN 2 WEEKS OFF
     Route: 048
  4. LOSARTAN [Concomitant]
     Dosage: 50 MG, 1X/DAY
  5. WARFARIN [Concomitant]
     Dosage: 5 MG, 1X/DAY
  6. OMEPRAZOLE [Concomitant]
     Dosage: 20 MG, 1X/DAY

REACTIONS (1)
  - DEATH [None]
